FAERS Safety Report 14231625 (Version 1)
Quarter: 2017Q4

REPORT INFORMATION
  Report Type: Spontaneous
  Country: IN (occurrence: IN)
  Receive Date: 20171128
  Receipt Date: 20171128
  Transmission Date: 20180321
  Serious: Yes (Life-Threatening, Hospitalization, Other)
  Sender: FDA-Public Use
  Company Number: IN-GLAXOSMITHKLINE-B0462417A

PATIENT
  Age: 28 Year
  Sex: Male

DRUGS (4)
  1. HALOPERIDOL. [Interacting]
     Active Substance: HALOPERIDOL
     Indication: BIPOLAR DISORDER
     Dosage: UNK
     Route: 048
  2. HALOPERIDOL. [Interacting]
     Active Substance: HALOPERIDOL
     Indication: AGITATION
     Dosage: UNK
     Route: 042
  3. OLANZAPINE. [Interacting]
     Active Substance: OLANZAPINE
     Indication: BIPOLAR DISORDER
     Dosage: 10 MG, QD
     Route: 065
     Dates: end: 2005
  4. LITHIUM. [Suspect]
     Active Substance: LITHIUM
     Indication: BIPOLAR DISORDER
     Dosage: 800 MG, UNK
     Route: 065
     Dates: end: 2005

REACTIONS (20)
  - Neurotoxicity [Unknown]
  - Mutism [Unknown]
  - Dyskinesia [Unknown]
  - Tremor [Recovering/Resolving]
  - Altered state of consciousness [Recovering/Resolving]
  - Blood creatine phosphokinase increased [Recovering/Resolving]
  - Catatonia [Unknown]
  - Speech disorder [Unknown]
  - Hypotonia [Recovering/Resolving]
  - Movement disorder [Unknown]
  - Cerebellar atrophy [Unknown]
  - Renal failure [Unknown]
  - Leukocytosis [Unknown]
  - Gait disturbance [Unknown]
  - Muscle rigidity [Unknown]
  - Dysarthria [Unknown]
  - Neuroleptic malignant syndrome [Unknown]
  - Nervous system disorder [Unknown]
  - Pyrexia [Recovered/Resolved]
  - Bedridden [Unknown]

NARRATIVE: CASE EVENT DATE: 200510
